FAERS Safety Report 24771310 (Version 3)
Quarter: 2025Q1

REPORT INFORMATION
  Report Type: Spontaneous
  Country: US (occurrence: US)
  Receive Date: 20241224
  Receipt Date: 20250121
  Transmission Date: 20250408
  Serious: Yes (Hospitalization, Other)
  Sender: MERCK
  Company Number: US-009507513-2412USA008208

PATIENT
  Sex: Female
  Weight: 61 kg

DRUGS (14)
  1. WINREVAIR [Suspect]
     Active Substance: SOTATERCEPT-CSRK
     Dosage: 0.7 MILLIGRAM/KILOGRAM, EVERY 21 DAYS
     Dates: start: 20240521, end: 20241220
  2. ELIQUIS [Suspect]
     Active Substance: APIXABAN
  3. ORENITRAM [Concomitant]
     Active Substance: TREPROSTINIL
     Dates: start: 20230911
  4. ORENITRAM [Concomitant]
     Active Substance: TREPROSTINIL
     Dosage: 1.25 MILLIGRAM, TID
     Route: 048
     Dates: start: 20231019
  5. ORENITRAM [Concomitant]
     Active Substance: TREPROSTINIL
     Dosage: 1 MILLIGRAM, TID
     Dates: start: 20240425
  6. ORENITRAM [Concomitant]
     Active Substance: TREPROSTINIL
     Dates: start: 20240627
  7. ADEMPAS [Concomitant]
     Active Substance: RIOCIGUAT
     Dosage: 1 MILLIGRAM, TID
     Dates: start: 20220720
  8. ADEMPAS [Concomitant]
     Active Substance: RIOCIGUAT
  9. ADEMPAS [Concomitant]
     Active Substance: RIOCIGUAT
  10. ADEMPAS [Concomitant]
     Active Substance: RIOCIGUAT
  11. OPSUMIT [Concomitant]
     Active Substance: MACITENTAN
     Dates: start: 20201203
  12. OPSUMIT [Concomitant]
     Active Substance: MACITENTAN
     Dosage: 10 MILLIGRAM, QD
     Dates: start: 20230622
  13. REMODULIN [Concomitant]
     Active Substance: TREPROSTINIL
     Dates: start: 20210427
  14. REMODULIN [Concomitant]
     Active Substance: TREPROSTINIL
     Dates: start: 20230911

REACTIONS (28)
  - Anaemia [Unknown]
  - Aortic valve incompetence [Unknown]
  - Cardiac tamponade [Unknown]
  - Pericardial effusion [Recovered/Resolved]
  - Mental status changes [Unknown]
  - Dilated cardiomyopathy [Unknown]
  - Pneumonia [Unknown]
  - Vascular stent insertion [Unknown]
  - Postmenopausal haemorrhage [Recovered/Resolved]
  - Hypotension [Unknown]
  - Hallucination [Unknown]
  - Gastric ulcer [Unknown]
  - Gastrointestinal haemorrhage [Recovered/Resolved]
  - Epistaxis [Recovered/Resolved]
  - Atrial fibrillation [Recovered/Resolved]
  - Atrial fibrillation [Unknown]
  - Pulmonary valve incompetence [Unknown]
  - Malaise [Unknown]
  - Anxiety [Unknown]
  - Arthritis [Unknown]
  - Atelectasis [Unknown]
  - Duodenitis [Unknown]
  - Hypotension [Recovered/Resolved]
  - Uterine leiomyoma [Unknown]
  - Orthopnoea [Unknown]
  - Headache [Recovering/Resolving]
  - Dizziness [Unknown]
  - Gastritis [Unknown]

NARRATIVE: CASE EVENT DATE: 20240101
